FAERS Safety Report 15203766 (Version 1)
Quarter: 2018Q3

REPORT INFORMATION
  Report Type: Spontaneous
  Country: GB (occurrence: GB)
  Receive Date: 20180726
  Receipt Date: 20180726
  Transmission Date: 20181010
  Serious: Yes (Other)
  Sender: FDA-Public Use
  Company Number: GB-TEVA-2018-GB-931111

PATIENT
  Age: 37 Year
  Sex: Female

DRUGS (3)
  1. CO?DYDRAMOL [Suspect]
     Active Substance: ACETAMINOPHEN\DIHYDROCODEINE
     Dosage: 12 DOSAGE FORMS DAILY; 10MG/500MG
     Route: 048
     Dates: start: 20180609
  2. CLINDAMYCIN. [Suspect]
     Active Substance: CLINDAMYCIN
     Indication: ANTIBIOTIC THERAPY
     Dosage: 600MG/4ML
     Route: 065
     Dates: start: 20180609
  3. MEROPENEM. [Suspect]
     Active Substance: MEROPENEM
     Dosage: 3 GRAM DAILY;
     Route: 041
     Dates: start: 20180609, end: 20180613

REACTIONS (1)
  - Bradycardia [Recovering/Resolving]

NARRATIVE: CASE EVENT DATE: 20180609
